FAERS Safety Report 6704793-X (Version None)
Quarter: 2010Q2

REPORT INFORMATION
  Report Type: 
  Country: None (occurrence: None)
  Receive Date: 20100430
  Receipt Date: 20100112
  Transmission Date: 20101027
  Serious: Yes (Disabling)
  Sender: FDA-Public Use
  Company Number: US-ASTRAZENECA-2009SE24969

PATIENT
  Age: 20083 Day
  Sex: Male
  Weight: 64.9 kg

DRUGS (20)
  1. NEXIUM [Suspect]
     Indication: GASTROOESOPHAGEAL REFLUX DISEASE
     Route: 048
     Dates: start: 20010107, end: 20050101
  2. MORPHINE [Concomitant]
     Indication: PANCREATITIS CHRONIC
  3. ATIVAN [Concomitant]
     Route: 048
     Dates: start: 20100104
  4. ATIVAN [Concomitant]
     Route: 048
     Dates: start: 20100104
  5. RESTORIL [Concomitant]
     Route: 048
     Dates: start: 20091228
  6. SPIRONOLACTONE [Concomitant]
     Route: 048
     Dates: start: 20091214
  7. CREON [Concomitant]
     Dosage: 12000 UNITS/38000 UNITS/60000 UNITS
     Route: 048
     Dates: start: 20091117
  8. LANTUS [Concomitant]
     Dosage: 100 UNITS/1 INJECTION AS NEEDED
     Route: 058
     Dates: start: 20091015
  9. REGLAN [Concomitant]
     Route: 048
     Dates: start: 20091014
  10. LASIX [Concomitant]
     Route: 048
     Dates: start: 20091015
  11. ANASPAZ [Concomitant]
     Route: 048
     Dates: start: 20090915
  12. SOMA [Concomitant]
     Route: 048
     Dates: start: 20090915
  13. NITROGLYCERIN [Concomitant]
     Route: 060
     Dates: start: 20090915
  14. MAGNESIUM CITRATE [Concomitant]
     Dosage: AS DIRECTED
     Route: 048
     Dates: start: 20090915
  15. EFFEXOR [Concomitant]
     Route: 048
     Dates: start: 20090915
  16. LYRICA [Concomitant]
     Route: 048
     Dates: start: 20090915
  17. ASPIRIN [Concomitant]
     Route: 048
     Dates: start: 20090915
  18. MORPHINE SULFATE [Concomitant]
     Route: 048
     Dates: start: 20091216
  19. MORPHINE SULFATE [Concomitant]
     Dosage: 3 TABS BID
     Route: 048
     Dates: start: 20091216
  20. PHENERGAN [Concomitant]
     Route: 048
     Dates: start: 20090915

REACTIONS (2)
  - DRUG DOSE OMISSION [None]
  - GASTROOESOPHAGEAL REFLUX DISEASE [None]
